FAERS Safety Report 25352963 (Version 1)
Quarter: 2025Q2

REPORT INFORMATION
  Report Type: Spontaneous
  Country: GB (occurrence: GB)
  Receive Date: 20250523
  Receipt Date: 20250523
  Transmission Date: 20250716
  Serious: Yes (Other)
  Sender: PFIZER
  Company Number: GB-PFIZER INC-PV202500061105

PATIENT
  Age: 17 Year
  Sex: Female

DRUGS (1)
  1. GENOTROPIN [Suspect]
     Active Substance: SOMATROPIN

REACTIONS (1)
  - Spinal operation [Unknown]

NARRATIVE: CASE EVENT DATE: 20250412
